FAERS Safety Report 20017186 (Version 4)
Quarter: 2025Q4

REPORT INFORMATION
  Report Type: Spontaneous
  Country: EU (occurrence: EU)
  Receive Date: 20211030
  Receipt Date: 20251009
  Transmission Date: 20260118
  Serious: Yes (Other)
  Sender: NOVARTIS
  Company Number: EU-NOVARTISPH-NVSC2021PT242636

PATIENT
  Age: 67 Year
  Sex: Female

DRUGS (4)
  1. SECUKINUMAB [Suspect]
     Active Substance: SECUKINUMAB
     Indication: Psoriasis
     Dosage: 300 MG
     Route: 058
  2. SECUKINUMAB [Suspect]
     Active Substance: SECUKINUMAB
     Indication: Psoriatic arthropathy
  3. ADALIMUMAB [Suspect]
     Active Substance: ADALIMUMAB
     Indication: Psoriasis
     Dosage: 40 MG (FORTNIGHTLY)
     Route: 058
  4. ADALIMUMAB [Suspect]
     Active Substance: ADALIMUMAB
     Indication: Psoriatic arthropathy
     Dosage: UNK
     Route: 065

REACTIONS (17)
  - Systemic lupus erythematosus [Unknown]
  - Pyoderma gangrenosum [Recovered/Resolved]
  - Cell death [Unknown]
  - Skin ulcer [Recovered/Resolved]
  - Pustule [Unknown]
  - Skin lesion [Recovered/Resolved]
  - Purulent discharge [Recovered/Resolved]
  - Polyarthritis [Unknown]
  - Pyrexia [Unknown]
  - Odynophagia [Unknown]
  - Arthralgia [Unknown]
  - Aphthous ulcer [Unknown]
  - Red blood cell sedimentation rate increased [Unknown]
  - C-reactive protein increased [Unknown]
  - Double stranded DNA antibody positive [Unknown]
  - Psoriasis [Unknown]
  - Arthritis [Recovered/Resolved]
